FAERS Safety Report 8469428-7 (Version None)
Quarter: 2012Q2

REPORT INFORMATION
  Report Type: 
  Country: None (occurrence: None)
  Receive Date: 20120621
  Receipt Date: 20120621
  Transmission Date: 20120825
  Serious: No
  Sender: FDA-Public Use
  Company Number: None

PATIENT
  Age: 85 Year
  Sex: Female
  Weight: 58.0604 kg

DRUGS (1)
  1. RECLAST [Suspect]
     Dates: start: 20120531

REACTIONS (8)
  - CHILLS [None]
  - ASTHENIA [None]
  - NECK PAIN [None]
  - PAIN IN EXTREMITY [None]
  - HEART RATE INCREASED [None]
  - PAIN IN JAW [None]
  - PAIN [None]
  - HYPERHIDROSIS [None]
